FAERS Safety Report 5224699-5 (Version None)
Quarter: 2007Q1

REPORT INFORMATION
  Report Type: 
  Country: None (occurrence: None)
  Receive Date: 20070129
  Receipt Date: 20070129
  Transmission Date: 20070707
  Serious: Yes (Other)
  Sender: FDA-Public Use
  Company Number: None

PATIENT
  Sex: Male
  Weight: 78.0187 kg

DRUGS (2)
  1. KETEK [Suspect]
     Indication: BRONCHITIS
     Dosage: SEE IMAGE
     Route: 048
     Dates: start: 20060629
  2. KETEK [Suspect]
     Indication: BRONCHITIS
     Dosage: SEE IMAGE
     Route: 048
     Dates: start: 20060715

REACTIONS (4)
  - ABDOMINAL SYMPTOM [None]
  - INJURY [None]
  - LIVER DISORDER [None]
  - MALAISE [None]
